FAERS Safety Report 14091618 (Version 2)
Quarter: 2017Q4

REPORT INFORMATION
  Report Type: Spontaneous
  Country: JP (occurrence: JP)
  Receive Date: 20171016
  Receipt Date: 20171113
  Transmission Date: 20180321
  Serious: Yes (Hospitalization, Other)
  Sender: FDA-Public Use
  Company Number: JP-ROCHE-2005072

PATIENT
  Age: 75 Year
  Sex: Male
  Weight: 70 kg

DRUGS (23)
  1. DOCETAXEL. [Suspect]
     Active Substance: DOCETAXEL
     Indication: LUNG ADENOCARCINOMA
     Route: 041
     Dates: start: 20170314
  2. SENNOSIDE [Concomitant]
     Active Substance: SENNOSIDES
     Dosage: TAKEN FOR CONSTIPATION(BEFORE BEDTIME)TAKEN FOR CONSTIPATION
     Route: 048
     Dates: start: 20150126
  3. ONETRAM [Concomitant]
     Active Substance: TRAMADOL HYDROCHLORIDE
     Dosage: DOSE INTERVAL UNCERTAINTY
     Route: 048
     Dates: start: 20170316
  4. ZEFNART [Concomitant]
     Dosage: APPROPRIATENESS
     Route: 003
  5. RANITIDINE. [Suspect]
     Active Substance: RANITIDINE
     Indication: PREMEDICATION
     Dosage: THE FRACTIONATION DOSE FREQUENCY IS UNCERTAIN. ?DOSE INTERVAL UNCERTAINTY
     Route: 042
     Dates: start: 20170314
  6. NERISONA [Concomitant]
     Active Substance: DIFLUCORTOLONE VALERATE
     Dosage: APPROPRIATENESS
     Route: 003
  7. AVASTIN [Suspect]
     Active Substance: BEVACIZUMAB
     Indication: LUNG ADENOCARCINOMA
     Dosage: TREATMENT LINE: 3RD
     Route: 041
     Dates: start: 20170314
  8. GRANISETRON [Suspect]
     Active Substance: GRANISETRON
     Indication: PREMEDICATION
     Dosage: THE FRACTIONATION DOSE FREQUENCY IS UNCERTAIN. ?DOSE INTERVAL UNCERTAINTY
     Route: 042
     Dates: start: 20170314
  9. RESTAMIN [Suspect]
     Active Substance: DIPHENHYDRAMINE
     Dosage: SINGLE USE
     Route: 003
  10. TEARBALANCE [Concomitant]
     Active Substance: HYALURONATE SODIUM
     Dosage: 4 TIMES A DAY APPROPRIATE
     Route: 047
  11. ALESION [Concomitant]
     Active Substance: EPINASTINE HYDROCHLORIDE
     Dosage: 4 TIMES A DAY APPROPRIATE
     Route: 047
  12. RHUBARB. [Concomitant]
     Active Substance: RHUBARB
     Dosage: DOSE INTERVAL UNCERTAINTY
     Route: 048
     Dates: start: 20161216
  13. MAGMITT [Concomitant]
     Active Substance: MAGNESIUM OXIDE
     Dosage: DOSE INTERVAL UNCERTAINTY
     Route: 048
     Dates: start: 20141210
  14. TAPROS (JAPAN) [Concomitant]
     Dosage: DOSAGE IS UNCERTAIN.
     Route: 047
  15. DEXART [Suspect]
     Active Substance: DEXAMETHASONE SODIUM PHOSPHATE
     Indication: PREMEDICATION
     Dosage: THE FRACTIONATION DOSE FREQUENCY IS UNCERTAIN. ?DOSE INTERVAL UNCERTAINTY
     Route: 042
     Dates: start: 20170314
  16. NEXIUM [Concomitant]
     Active Substance: ESOMEPRAZOLE MAGNESIUM
     Dosage: DOSE INTERVAL UNCERTAINTY
     Route: 048
  17. CLENAFIN [Concomitant]
     Active Substance: EFINACONAZOLE
     Dosage: APPROPRIATENESS
     Route: 003
  18. AVASTIN [Suspect]
     Active Substance: BEVACIZUMAB
     Indication: LUNG ADENOCARCINOMA
     Route: 041
     Dates: start: 20170925
  19. DOCETAXEL. [Suspect]
     Active Substance: DOCETAXEL
     Indication: LUNG ADENOCARCINOMA
     Route: 041
     Dates: start: 20170925
  20. RESTAMIN [Suspect]
     Active Substance: DIPHENHYDRAMINE
     Indication: PRODUCT USED FOR UNKNOWN INDICATION
     Dosage: THE FRACTIONATION DOSE FREQUENCY IS UNCERTAIN. ?DOSE INTERVAL UNCERTAINTY
     Route: 048
     Dates: start: 20170314
  21. LIPITOR [Concomitant]
     Active Substance: ATORVASTATIN CALCIUM
     Dosage: DOSE INTERVAL UNCERTAINTY
     Route: 048
     Dates: start: 20170119
  22. BAYASPIRIN [Concomitant]
     Active Substance: ASPIRIN
     Dosage: DOSE INTERVAL UNCERTAINTY
     Route: 048
  23. ADALAT CC [Concomitant]
     Active Substance: NIFEDIPINE
     Dosage: DOSE INTERVAL UNCERTAINTY
     Route: 048

REACTIONS (6)
  - Nephrotic syndrome [Not Recovered/Not Resolved]
  - Neutrophil count decreased [Recovered/Resolved]
  - Diabetes mellitus [Recovering/Resolving]
  - Diabetic nephropathy [Not Recovered/Not Resolved]
  - Glomerulonephritis membranoproliferative [Unknown]
  - Proteinuria [Not Recovered/Not Resolved]

NARRATIVE: CASE EVENT DATE: 20170324
